FAERS Safety Report 15369753 (Version 1)
Quarter: 2018Q3

REPORT INFORMATION
  Report Type: Spontaneous
  Country: FR (occurrence: FR)
  Receive Date: 20180911
  Receipt Date: 20180911
  Transmission Date: 20181010
  Serious: Yes (Hospitalization, Other)
  Sender: FDA-Public Use
  Company Number: FR-ACCORD-071473

PATIENT
  Age: 26 Year
  Sex: Male
  Weight: 80 kg

DRUGS (3)
  1. QUETIAPINE. [Suspect]
     Active Substance: QUETIAPINE
     Route: 048
     Dates: start: 201806, end: 201806
  2. VALPROMIDE [Suspect]
     Active Substance: VALPROMIDE
     Dosage: NP
     Route: 048
     Dates: start: 201806, end: 201806
  3. MIRTAZAPINE. [Suspect]
     Active Substance: MIRTAZAPINE
     Dosage: NP
     Route: 048
     Dates: start: 201806, end: 201806

REACTIONS (6)
  - Acute kidney injury [Recovered/Resolved]
  - Poisoning deliberate [Unknown]
  - Pneumonia aspiration [Recovered/Resolved]
  - Rhabdomyolysis [Recovered/Resolved]
  - Altered state of consciousness [Recovered/Resolved]
  - Intentional overdose [Unknown]

NARRATIVE: CASE EVENT DATE: 201806
